FAERS Safety Report 20575416 (Version 1)
Quarter: 2022Q1

REPORT INFORMATION
  Report Type: Other
  Country: US (occurrence: None)
  Receive Date: 20220310
  Receipt Date: 20220310
  Transmission Date: 20220423
  Serious: Yes (Other)
  Sender: FDA-Public Use
  Company Number: US-ROCHE-3001408

PATIENT
  Age: 60 Year
  Sex: Male
  Weight: 138.47 kg

DRUGS (1)
  1. OCREVUS [Suspect]
     Active Substance: OCRELIZUMAB
     Indication: Progressive multiple sclerosis
     Dosage: DATE OF TREATMENT: 08/APR/2021, 22/APR/2021
     Route: 042
     Dates: start: 202104

REACTIONS (29)
  - Multiple sclerosis [Unknown]
  - Hemiparesis [Unknown]
  - Hemiparesis [Unknown]
  - Hypokalaemia [Unknown]
  - Type 2 diabetes mellitus [Unknown]
  - Clostridium difficile colitis [Unknown]
  - Cystitis [Unknown]
  - Hypomagnesaemia [Unknown]
  - Infusion related reaction [Recovered/Resolved]
  - Thyroid mass [Unknown]
  - Prostatic specific antigen increased [Unknown]
  - Leukocytosis [Unknown]
  - Back pain [Unknown]
  - Obesity [Unknown]
  - Muscular weakness [Unknown]
  - Bone pain [Unknown]
  - Radicular pain [Unknown]
  - Arthralgia [Unknown]
  - Benign prostatic hyperplasia [Unknown]
  - COVID-19 [Unknown]
  - Malaise [Unknown]
  - Orchitis [Unknown]
  - Vomiting [Unknown]
  - Myalgia [Unknown]
  - Asthenia [Unknown]
  - Electrocardiogram abnormal [Unknown]
  - Paranasal sinus mucosal hypertrophy [Unknown]
  - Paranasal cyst [Unknown]
  - Mucosal hypertrophy [Unknown]

NARRATIVE: CASE EVENT DATE: 20220112
